FAERS Safety Report 12397462 (Version 1)
Quarter: 2016Q2

REPORT INFORMATION
  Report Type: Spontaneous
  Country: None (occurrence: None)
  Receive Date: 20160523
  Receipt Date: 20160523
  Transmission Date: 20160815
  Serious: Yes (Hospitalization)
  Sender: FDA-Public Use
  Company Number: None

PATIENT
  Age: 31 Year
  Sex: Female
  Weight: 56.7 kg

DRUGS (3)
  1. DEPLIN [Concomitant]
     Active Substance: LEVOMEFOLATE CALCIUM
  2. BUPROPION HCL ER (SR) 12HR 100MG, 100 MG [Suspect]
     Active Substance: BUPROPION HYDROCHLORIDE
     Indication: DEPRESSION
     Dosage: 25 TABLET(S)  IN THE MORNING TAKEN BY MOUTH
     Route: 048
     Dates: start: 20160407, end: 20160502
  3. ESCITALOPRAM [Concomitant]
     Active Substance: ESCITALOPRAM OXALATE

REACTIONS (2)
  - Product quality issue [None]
  - Drug ineffective [None]

NARRATIVE: CASE EVENT DATE: 20160515
